FAERS Safety Report 19269002 (Version 1)
Quarter: 2021Q2

REPORT INFORMATION
  Report Type: Spontaneous
  Country: US (occurrence: US)
  Receive Date: 20210517
  Receipt Date: 20210517
  Transmission Date: 20210717
  Serious: No
  Sender: FDA-Public Use
  Company Number: NVSC2021US109049

PATIENT
  Sex: Female

DRUGS (1)
  1. PROMACTA [Suspect]
     Active Substance: ELTROMBOPAG OLAMINE
     Indication: IRON DEFICIENCY ANAEMIA
     Dosage: 25 MG, QD
     Route: 048
     Dates: start: 202103

REACTIONS (3)
  - Insomnia [Unknown]
  - Diarrhoea [Unknown]
  - Product use in unapproved indication [Unknown]
